FAERS Safety Report 4509405-1 (Version None)
Quarter: 2004Q4

REPORT INFORMATION
  Report Type: 
  Country: None (occurrence: None)
  Receive Date: 20041025
  Receipt Date: 20040813
  Transmission Date: 20050328
  Serious: Yes (Hospitalization)
  Sender: FDA-Public Use
  Company Number: US-JNJFOC-20040705194

PATIENT
  Age: 34 Year
  Sex: Female
  Weight: 54.4316 kg

DRUGS (11)
  1. REMICADE [Suspect]
     Indication: CROHN'S DISEASE
     Dosage: INTRAVENOUS
     Route: 042
     Dates: start: 20030711
  2. ALLEGRA [Concomitant]
  3. ZANTAC [Concomitant]
  4. ZOLOFT [Concomitant]
  5. ASACOL [Concomitant]
  6. ASAFEC (ALL OTHER THERAPEUTIC PRODUCTS) [Concomitant]
  7. XANAX [Concomitant]
  8. BIRTH CONTROL PILLS (ORAL CONTRACEPTIVE NOS) [Concomitant]
  9. ACIPHEX [Concomitant]
  10. GUAIPHENESIN (GUAIFENESIN) [Concomitant]
  11. CHROMUGEN FE (TEGAFUR) [Concomitant]

REACTIONS (5)
  - ARTHRALGIA [None]
  - BLOOD PRESSURE DECREASED [None]
  - INFUSION RELATED REACTION [None]
  - THROAT TIGHTNESS [None]
  - URTICARIA [None]
